FAERS Safety Report 9865764 (Version 1)
Quarter: 2014Q1

REPORT INFORMATION
  Report Type: Spontaneous
  Country: US (occurrence: US)
  Receive Date: 20140203
  Receipt Date: 20140203
  Transmission Date: 20141002
  Serious: No
  Sender: FDA-Public Use
  Company Number: US-ALLERGAN-1310545US

PATIENT
  Sex: Female

DRUGS (4)
  1. RESTASIS [Suspect]
     Indication: DRY EYE
     Dosage: 2 GTT, BID
     Route: 047
     Dates: start: 20130706
  2. BROMDAY [Concomitant]
     Indication: PRODUCT USED FOR UNKNOWN INDICATION
  3. BENEVANCE [Concomitant]
     Indication: PRODUCT USED FOR UNKNOWN INDICATION
     Dosage: UNK, BID
  4. DURAZOL [Concomitant]
     Indication: PRODUCT USED FOR UNKNOWN INDICATION
     Dosage: UNK, BID

REACTIONS (3)
  - Abnormal sensation in eye [Unknown]
  - Foreign body sensation in eyes [Unknown]
  - Eye irritation [Unknown]
